FAERS Safety Report 6190071-7 (Version None)
Quarter: 2009Q2

REPORT INFORMATION
  Report Type: 
  Country: None (occurrence: None)
  Receive Date: 20090513
  Receipt Date: 20090513
  Transmission Date: 20091009
  Serious: Yes (Life-Threatening)
  Sender: FDA-Public Use
  Company Number: None

PATIENT
  Age: 90 Year
  Sex: Male
  Weight: 59 kg

DRUGS (2)
  1. INVANZ [Suspect]
     Indication: DECUBITUS ULCER
     Dosage: 1 GM Q24H IV
     Route: 042
     Dates: start: 20090216, end: 20090319
  2. INVANZ [Suspect]
     Indication: OSTEOMYELITIS
     Dosage: 1 GM Q24H IV
     Route: 042
     Dates: start: 20090216, end: 20090319

REACTIONS (1)
  - CONVULSION [None]
